FAERS Safety Report 5264394-X (Version None)
Quarter: 2007Q1

REPORT INFORMATION
  Report Type: 
  Country: None (occurrence: None)
  Receive Date: 20070309
  Receipt Date: 20070302
  Transmission Date: 20070707
  Serious: Yes (Hospitalization)
  Sender: FDA-Public Use
  Company Number: 237629

PATIENT
  Age: 39 Year
  Sex: Female

DRUGS (2)
  1. RITUXAN [Suspect]
     Indication: RHEUMATOID ARTHRITIS
     Dosage: 1000 MG, X2, INTRAVENOUS
     Route: 042
  2. LEVAQUIN [Concomitant]

REACTIONS (6)
  - BLOOD PRESSURE DECREASED [None]
  - CHILLS [None]
  - CULTURE URINE POSITIVE [None]
  - KNEE ARTHROPLASTY [None]
  - NEPHROLITHIASIS [None]
  - PYREXIA [None]
